FAERS Safety Report 4793658-9 (Version None)
Quarter: 2005Q4

REPORT INFORMATION
  Report Type: 
  Country: None (occurrence: None)
  Receive Date: 20051011
  Receipt Date: 20050829
  Transmission Date: 20060501
  Serious: Yes (Other)
  Sender: FDA-Public Use
  Company Number: PHHO2005CA13572

PATIENT
  Age: 75 Year
  Sex: Female

DRUGS (2)
  1. ZELNORM [Suspect]
     Indication: IRRITABLE BOWEL SYNDROME
     Dosage: 6 MG, UNK
     Route: 048
     Dates: start: 20050318
  2. ZELNORM [Suspect]
     Dosage: 3 MG, UNK
     Dates: end: 20050503

REACTIONS (5)
  - BLADDER PROLAPSE [None]
  - CONSTIPATION [None]
  - DEFAECATION URGENCY [None]
  - HAEMORRHOIDS [None]
  - RECTAL PROLAPSE [None]
